FAERS Safety Report 6042208-8 (Version None)
Quarter: 2009Q1

REPORT INFORMATION
  Report Type: 
  Country: None (occurrence: None)
  Receive Date: 20090116
  Receipt Date: 20080626
  Transmission Date: 20090719
  Serious: No
  Sender: FDA-Public Use
  Company Number: US-BAYER-200812656BCC

PATIENT
  Age: 51 Year
  Sex: Female
  Weight: 77 kg

DRUGS (5)
  1. ALEVE [Suspect]
     Indication: PAIN
     Dosage: AS USED: 220 MG  UNIT DOSE: 220 MG
     Route: 048
  2. ALEVE [Suspect]
     Dosage: AS USED: 220 MG  UNIT DOSE: 220 MG
     Route: 048
  3. CITRACAL PLUS D [Suspect]
     Indication: MINERAL SUPPLEMENTATION
     Route: 048
     Dates: start: 20080625
  4. ATENOLOL [Concomitant]
  5. CENTRUM [Concomitant]

REACTIONS (2)
  - ABDOMINAL DISCOMFORT [None]
  - ABDOMINAL PAIN UPPER [None]
